FAERS Safety Report 8902671 (Version 1)
Quarter: 2012Q4

REPORT INFORMATION
  Report Type: Report from Study
  Country: JP (occurrence: JP)
  Receive Date: 20121112
  Receipt Date: 20121112
  Transmission Date: 20130627
  Serious: Yes (Life-Threatening, Hospitalization, Other)
  Sender: FDA-Public Use
  Company Number: JP-GENZYME-THYM-1003164

PATIENT
  Age: 17 Year
  Sex: Male
  Weight: 62 kg

DRUGS (42)
  1. THYMOGLOBULIN [Suspect]
     Indication: BONE MARROW CONDITIONING REGIMEN
     Dosage: 82 mg, qd
     Route: 042
     Dates: start: 20110222, end: 20110223
  2. SODIUM BICARBONATE [Concomitant]
     Indication: PROPHYLAXIS
     Dosage: UNK
     Route: 065
     Dates: start: 20110215, end: 20110217
  3. DALTEPARIN SODIUM [Concomitant]
     Indication: THROMBOSIS PROPHYLAXIS
     Dosage: UNK
     Route: 065
     Dates: start: 20110215, end: 20110415
  4. FAMOTIDINE [Concomitant]
     Indication: PROPHYLAXIS
     Dosage: UNK
     Route: 065
     Dates: start: 20110215, end: 20110321
  5. FAMOTIDINE [Concomitant]
     Indication: GASTRITIS PROPHYLAXIS
     Dosage: UNK
     Route: 065
     Dates: start: 20110321, end: 20110613
  6. GRANISETRON HYDROCHLORIDE [Concomitant]
     Indication: PROPHYLAXIS OF NAUSEA AND VOMITING
     Dosage: UNK
     Route: 065
     Dates: start: 20110215, end: 20110308
  7. HYDROCORTISONE SODIUM SUCCINATE [Concomitant]
     Indication: PROPHYLAXIS OF NAUSEA AND VOMITING
     Dosage: UNK
     Route: 065
     Dates: start: 20110215, end: 20110224
  8. ACETAZOLAMIDE SODIUM [Concomitant]
     Indication: PROPHYLAXIS
     Dosage: UNK
     Route: 065
     Dates: start: 20110215, end: 20110217
  9. MESNA [Concomitant]
     Indication: PROPHYLAXIS
     Dosage: UNK
     Route: 065
  10. CYCLOPHOSPHAMIDE [Concomitant]
     Indication: BONE MARROW CONDITIONING REGIMEN
     Dosage: UNK
     Route: 065
     Dates: start: 20110215, end: 20110216
  11. MICAFUNGIN SODIUM [Concomitant]
     Indication: INFECTION PROPHYLAXIS
     Dosage: UNK
     Route: 065
  12. PIPERACILLIN SODIUM [Concomitant]
     Indication: INFECTION PROPHYLAXIS
     Dosage: UNK
     Route: 065
     Dates: start: 20110215, end: 20110225
  13. FUROSEMIDE [Concomitant]
     Indication: PROPHYLAXIS
     Dosage: UNK
     Route: 065
  14. ETOPOSIDE [Concomitant]
     Indication: BONE MARROW CONDITIONING REGIMEN
     Dosage: UNK
     Route: 065
     Dates: start: 20110219, end: 20110220
  15. HYDROXYZINE HYDROCHLORIDE [Concomitant]
     Indication: PREMEDICATION
     Dosage: UNK
     Route: 065
     Dates: start: 20110222, end: 20110223
  16. METHYLPREDNISOLONE SODIUM SUCCINATE [Concomitant]
     Indication: PREMEDICATION
     Dosage: UNK
     Route: 065
     Dates: start: 20110222, end: 20110323
  17. TACROLIMUS [Concomitant]
     Indication: PROPHYLAXIS AGAINST GRAFT VERSUS HOST DISEASE
     Dosage: UNK
     Route: 065
     Dates: start: 20110223, end: 20110317
  18. TACROLIMUS [Concomitant]
     Dosage: UNK
     Route: 065
     Dates: start: 20110318, end: 20110816
  19. METHOTREXATE [Concomitant]
     Indication: PROPHYLAXIS AGAINST GRAFT VERSUS HOST DISEASE
     Dosage: UNK
     Route: 065
     Dates: start: 20110225, end: 20110225
  20. METHOTREXATE [Concomitant]
     Dosage: UNK
     Route: 065
     Dates: start: 20110302, end: 20110302
  21. AMIKACIN SULFATE [Concomitant]
     Indication: INFECTION PROPHYLAXIS
     Dosage: UNK
     Route: 065
     Dates: start: 20110225, end: 20110315
  22. LENOGRASTIM [Concomitant]
     Indication: PROPHYLAXIS
     Dosage: UNK
     Route: 065
     Dates: start: 20110225, end: 20110309
  23. VANCOMYCIN HYDROCHLORIDE [Concomitant]
     Indication: INFECTION PROPHYLAXIS
     Dosage: UNK
     Route: 065
     Dates: start: 20110303, end: 20110310
  24. VANCOMYCIN HYDROCHLORIDE [Concomitant]
     Dosage: UNK
     Route: 065
     Dates: start: 20110215, end: 20110311
  25. ETHYL ICOSAPENTATE [Concomitant]
     Indication: PROPHYLAXIS
     Dosage: UNK
     Route: 065
     Dates: start: 20110215, end: 20110525
  26. URSODEOXYCHOLIC ACID [Concomitant]
     Indication: PROPHYLAXIS
     Dosage: UNK
     Route: 065
     Dates: start: 20110215, end: 20110525
  27. ACICLOVIR [Concomitant]
     Indication: INFECTION PROPHYLAXIS
     Dosage: UNK
     Route: 065
     Dates: start: 20110215, end: 20110401
  28. LOPERAMIDE HYDROCHLORIDE [Concomitant]
     Indication: DIARRHOEA
     Dosage: UNK
     Route: 065
     Dates: start: 20110215, end: 20110311
  29. APREPITANT [Concomitant]
     Indication: PROPHYLAXIS OF NAUSEA AND VOMITING
     Dosage: UNK
     Route: 065
     Dates: start: 20110218, end: 20110220
  30. NIFEDIPINE [Concomitant]
     Indication: HYPERTENSION
     Dosage: UNK
     Route: 065
     Dates: start: 20110219, end: 20110330
  31. SULFAMETHOPRIM [Concomitant]
     Indication: INFECTION PROPHYLAXIS
     Dosage: UNK
     Route: 065
     Dates: start: 20110309
  32. PREDNISOLONE [Concomitant]
     Indication: PROPHYLAXIS AGAINST GRAFT VERSUS HOST DISEASE
     Dosage: UNK
     Route: 065
     Dates: start: 20110321
  33. ITRACONAZOLE [Concomitant]
     Indication: INFECTION PROPHYLAXIS
     Dosage: UNK
     Route: 065
     Dates: start: 20110321, end: 20110505
  34. ITRACONAZOLE [Concomitant]
     Dosage: u
     Route: 065
     Dates: start: 20110506
  35. PLATELETS, HUMAN BLOOD [Concomitant]
     Indication: BONE MARROW CONDITIONING REGIMEN
     Dosage: UNK
     Route: 065
     Dates: start: 20110220, end: 20110314
  36. PLATELETS, HUMAN BLOOD [Concomitant]
     Indication: LEUKAEMIA RECURRENT
  37. HUMAN RED BLOOD CELLS [Concomitant]
     Indication: LEUKAEMIA RECURRENT
     Dosage: UNK
     Route: 065
     Dates: start: 20110303, end: 20110303
  38. HUMAN RED BLOOD CELLS [Concomitant]
     Indication: BONE MARROW CONDITIONING REGIMEN
     Dosage: UNK
     Route: 065
     Dates: start: 20110305, end: 20110305
  39. HUMAN RED BLOOD CELLS [Concomitant]
     Dosage: UNK
     Route: 065
     Dates: start: 20110307, end: 20110307
  40. CILASTATIN W [Concomitant]
     Indication: INFECTION PROPHYLAXIS
     Dosage: UNK
     Route: 065
     Dates: start: 20110302, end: 20110315
  41. PREDNISOLONE SODIUM SUCCINATE [Concomitant]
     Indication: PROPHYLAXIS AGAINST GRAFT VERSUS HOST DISEASE
     Dosage: UNK
     Route: 065
     Dates: start: 20110224, end: 20110318
  42. TOTAL BODY IRRADIATION [Concomitant]
     Indication: BONE MARROW CONDITIONING REGIMEN
     Dosage: 12 Cy
     Route: 065
     Dates: start: 20110217, end: 20110221

REACTIONS (15)
  - Hepatic function abnormal [Recovered/Resolved]
  - Bacterial sepsis [Recovered/Resolved]
  - Graft versus host disease in skin [Recovered/Resolved]
  - Acute graft versus host disease [Not Recovered/Not Resolved]
  - Cytomegalovirus viraemia [Recovered/Resolved]
  - Stomatitis [Recovered/Resolved]
  - Hypophagia [Unknown]
  - Abdominal pain [Recovered/Resolved]
  - Pyrexia [Recovered/Resolved]
  - Diarrhoea [Recovered/Resolved]
  - Pyrexia [Recovered/Resolved]
  - Leukaemia recurrent [Not Recovered/Not Resolved]
  - Anxiety [Recovered/Resolved]
  - Hyperglycaemia [Recovered/Resolved]
  - Hypertension [Recovered/Resolved]
